FAERS Safety Report 11796301 (Version 1)
Quarter: 2015Q4

REPORT INFORMATION
  Report Type: Spontaneous
  Country: IT (occurrence: IT)
  Receive Date: 20151203
  Receipt Date: 20151203
  Transmission Date: 20160305
  Serious: No
  Sender: FDA-Public Use
  Company Number: IT-GLENMARK PHARMACEUTICALS INC, USA.-2015GMK015050

PATIENT

DRUGS (1)
  1. PRAMIPEXOLE DIHYDROCHLORIDE. [Suspect]
     Active Substance: PRAMIPEXOLE DIHYDROCHLORIDE
     Indication: RESTLESS LEGS SYNDROME
     Dosage: UNK

REACTIONS (4)
  - Hallucination [Recovering/Resolving]
  - Off label use [Unknown]
  - Delusion [Recovering/Resolving]
  - Paranoia [Recovering/Resolving]
